FAERS Safety Report 17165148 (Version 1)
Quarter: 2019Q4

REPORT INFORMATION
  Report Type: Spontaneous
  Country: US (occurrence: US)
  Receive Date: 20191217
  Receipt Date: 20191217
  Transmission Date: 20200122
  Serious: No
  Sender: FDA-Public Use
  Company Number: US-PERRIGO-19US000989

PATIENT
  Sex: Female

DRUGS (1)
  1. TIOCONAZOLE. [Suspect]
     Active Substance: TIOCONAZOLE
     Indication: VAGINAL INFECTION
     Dosage: 300 MG, SINGLE
     Route: 067
     Dates: start: 20190118, end: 20190118

REACTIONS (1)
  - Vulvovaginal burning sensation [Unknown]

NARRATIVE: CASE EVENT DATE: 20190118
